FAERS Safety Report 6268500-X (Version None)
Quarter: 2009Q3

REPORT INFORMATION
  Report Type: 
  Country: None (occurrence: None)
  Receive Date: 20090715
  Receipt Date: 20090706
  Transmission Date: 20100115
  Serious: Yes (Other)
  Sender: FDA-Public Use
  Company Number: FR-TEVA-201558ISR

PATIENT

DRUGS (2)
  1. CLOMIPRAMINE HCL [Suspect]
     Route: 064
  2. CLOMIPRAMINE HCL [Suspect]
     Route: 063

REACTIONS (4)
  - ADJUSTMENT DISORDER [None]
  - DRUG EXPOSURE VIA BREAST MILK [None]
  - HYPOTONIA [None]
  - HYPOVENTILATION [None]
